FAERS Safety Report 11631551 (Version 12)
Quarter: 2018Q2

REPORT INFORMATION
  Report Type: Report from Study
  Country: CA (occurrence: CA)
  Receive Date: 20151015
  Receipt Date: 20180604
  Transmission Date: 20180711
  Serious: Yes (Other)
  Sender: FDA-Public Use
  Company Number: CA-ROCHE-1635698

PATIENT
  Age: 73 Year
  Sex: Male

DRUGS (30)
  1. ELTROXIN [Concomitant]
     Active Substance: LEVOTHYROXINE
  2. OXYCODONE [Concomitant]
     Active Substance: OXYCODONE
  3. MONOCOR [Concomitant]
     Active Substance: BISOPROLOL FUMARATE
  4. ESBRIET [Suspect]
     Active Substance: PIRFENIDONE
     Route: 048
     Dates: start: 20150923
  5. SPIRIVA [Concomitant]
     Active Substance: TIOTROPIUM BROMIDE MONOHYDRATE
  6. APO-K [Concomitant]
     Active Substance: POTASSIUM CHLORIDE
  7. DIAMICRON [Concomitant]
     Active Substance: GLICLAZIDE
  8. ESBRIET [Suspect]
     Active Substance: PIRFENIDONE
     Route: 048
     Dates: start: 20150916
  9. FUROSEMIDE. [Concomitant]
     Active Substance: FUROSEMIDE
  10. BREO (UNK INGREDIENTS) [Concomitant]
  11. LACTULOSE. [Concomitant]
     Active Substance: LACTULOSE
     Route: 065
  12. ALLOPURINOL. [Concomitant]
     Active Substance: ALLOPURINOL
  13. PANTOLOC [Concomitant]
     Active Substance: PANTOPRAZOLE SODIUM
  14. TUDORZA PRESSAIR [Concomitant]
     Active Substance: ACLIDINIUM BROMIDE
  15. ASA [Concomitant]
     Active Substance: ASPIRIN
  16. LORAZEPAM. [Concomitant]
     Active Substance: LORAZEPAM
  17. PERCOCET [Concomitant]
     Active Substance: ACETAMINOPHEN\OXYCODONE HYDROCHLORIDE
  18. SENOKOT [Concomitant]
     Active Substance: SENNOSIDES
  19. ESBRIET [Suspect]
     Active Substance: PIRFENIDONE
     Indication: IDIOPATHIC PULMONARY FIBROSIS
     Route: 048
     Dates: start: 20150909
  20. ATENOLOL. [Concomitant]
     Active Substance: ATENOLOL
  21. BETADERM (BETAMETHASONE VALERATE) [Concomitant]
  22. VENTOLIN [Concomitant]
     Active Substance: ALBUTEROL SULFATE
     Route: 065
  23. SYMBICORT [Concomitant]
     Active Substance: BUDESONIDE\FORMOTEROL FUMARATE DIHYDRATE
  24. PREDNISONE. [Concomitant]
     Active Substance: PREDNISONE
     Route: 065
  25. FOLIC ACID. [Concomitant]
     Active Substance: FOLIC ACID
  26. OXYGEN. [Concomitant]
     Active Substance: OXYGEN
  27. COLCHICINE. [Concomitant]
     Active Substance: COLCHICINE
  28. TRAVATAN [Concomitant]
     Active Substance: TRAVOPROST
     Route: 065
  29. NYSTATIN. [Concomitant]
     Active Substance: NYSTATIN
  30. NITRO SPRAY (NO OTHER INFORMATION IS AVAILABLE) [Concomitant]

REACTIONS (15)
  - Lower respiratory tract infection [Recovered/Resolved]
  - Anxiety [Not Recovered/Not Resolved]
  - Decreased appetite [Not Recovered/Not Resolved]
  - Dizziness [Unknown]
  - Abdominal discomfort [Unknown]
  - Pruritus [Not Recovered/Not Resolved]
  - Abdominal discomfort [Recovered/Resolved]
  - Dyspnoea [Unknown]
  - Abdominal abscess [Not Recovered/Not Resolved]
  - Depressed mood [Not Recovered/Not Resolved]
  - Cardiac disorder [Unknown]
  - Fatigue [Not Recovered/Not Resolved]
  - Crying [Not Recovered/Not Resolved]
  - Stress [Not Recovered/Not Resolved]
  - Sinus congestion [Not Recovered/Not Resolved]

NARRATIVE: CASE EVENT DATE: 20150923
